FAERS Safety Report 10592269 (Version 1)
Quarter: 2014Q4

REPORT INFORMATION
  Report Type: Spontaneous
  Country: IT (occurrence: None)
  Receive Date: 20141117
  Receipt Date: 20141117
  Transmission Date: 20150529
  Serious: Yes (Death, Life-Threatening, Hospitalization)
  Sender: FDA-Public Use
  Company Number: FK201404989

PATIENT
  Age: 43 Year
  Sex: Male

DRUGS (5)
  1. RITONAVIR (RITONAVIR) [Concomitant]
     Active Substance: RITONAVIR
  2. TRIMETHOPRIM-SULFAMETHOXAZOLE (BACTRIM) [Concomitant]
  3. METHYLPREDNISOLONE. [Suspect]
     Active Substance: METHYLPREDNISOLONE
     Indication: PNEUMOCYSTIS JIROVECII PNEUMONIA
     Dosage: 80 MG, 1 IN 12 HR, UNKNOWN
  4. ATAZANAVIR (ATAZANAVIR) [Concomitant]
     Active Substance: ATAZANAVIR
  5. TENOFOVIR-EMTRICITABINE (EMTRICITABINE W/TENOFOVIR) [Concomitant]

REACTIONS (2)
  - Herpes zoster disseminated [None]
  - Acute respiratory distress syndrome [None]
